FAERS Safety Report 13167895 (Version 1)
Quarter: 2017Q1

REPORT INFORMATION
  Report Type: Spontaneous
  Country: RU (occurrence: RU)
  Receive Date: 20170131
  Receipt Date: 20170131
  Transmission Date: 20170428
  Serious: Yes (Other)
  Sender: FDA-Public Use
  Company Number: RU-BAYER-2016-235570

PATIENT
  Age: 29 Year
  Sex: Female

DRUGS (2)
  1. YARINA [Suspect]
     Active Substance: DROSPIRENONE\ETHINYL ESTRADIOL
     Indication: OVARIAN RUPTURE
  2. YARINA [Suspect]
     Active Substance: DROSPIRENONE\ETHINYL ESTRADIOL
     Indication: CONTRACEPTION
     Dosage: 1 DF, QD
     Route: 048
     Dates: start: 2011, end: 2014

REACTIONS (6)
  - Caesarean section [Recovered/Resolved]
  - Drug dose omission [None]
  - Premature delivery [Recovered/Resolved]
  - Pregnancy on oral contraceptive [Recovered/Resolved]
  - Amenorrhoea [Recovered/Resolved]
  - Drug ineffective [None]

NARRATIVE: CASE EVENT DATE: 2014
